FAERS Safety Report 17062459 (Version 1)
Quarter: 2019Q4

REPORT INFORMATION
  Report Type: Spontaneous
  Country: JP (occurrence: JP)
  Receive Date: 20191122
  Receipt Date: 20191122
  Transmission Date: 20200122
  Serious: Yes (Hospitalization)
  Sender: FDA-Public Use
  Company Number: JP-TEVA-2019-JP-008507J

PATIENT
  Age: 54 Year
  Sex: Female

DRUGS (1)
  1. CLINDAMYCIN INJECTION 600MG TAIYO [Suspect]
     Active Substance: CLINDAMYCIN PHOSPHATE
     Indication: PRODUCT USED FOR UNKNOWN INDICATION
     Route: 065
     Dates: start: 201810, end: 201810

REACTIONS (1)
  - Drug eruption [Unknown]
